FAERS Safety Report 9302600 (Version 1)
Quarter: 2013Q2

REPORT INFORMATION
  Report Type: Spontaneous
  Country: GR (occurrence: None)
  Receive Date: 20130517
  Receipt Date: 20130517
  Transmission Date: 20140414
  Serious: Yes (Other)
  Sender: FDA-Public Use
  Company Number: ENTC2013-0181

PATIENT
  Age: 82 Year
  Sex: Male

DRUGS (1)
  1. STALEVO (LEVODOPA, CARBIDOPA, ENTACAPONE) [Suspect]
     Indication: PARKINSON^S DISEASE
     Dosage: 100 X 3

REACTIONS (5)
  - Incorrect dose administered [None]
  - Inappropriate schedule of drug administration [None]
  - General physical health deterioration [None]
  - Orthostatic hypotension [None]
  - Fall [None]
